FAERS Safety Report 15223581 (Version 1)
Quarter: 2018Q3

REPORT INFORMATION
  Report Type: Spontaneous
  Country: US (occurrence: US)
  Receive Date: 20180731
  Receipt Date: 20180731
  Transmission Date: 20181010
  Serious: Yes (Other)
  Sender: FDA-Public Use
  Company Number: US-SA-2018SA203950

PATIENT
  Sex: Female

DRUGS (8)
  1. SULFASALAZINE. [Suspect]
     Active Substance: SULFASALAZINE
     Dosage: UNK
  2. METHOTREXATE. [Suspect]
     Active Substance: METHOTREXATE
     Dosage: UNK
  3. ARAVA [Suspect]
     Active Substance: LEFLUNOMIDE
  4. ENBREL [Suspect]
     Active Substance: ETANERCEPT
     Indication: PSORIATIC ARTHROPATHY
  5. OTEZLA [Suspect]
     Active Substance: APREMILAST
  6. CIMZIA [Suspect]
     Active Substance: CERTOLIZUMAB PEGOL
  7. STELARA [Suspect]
     Active Substance: USTEKINUMAB
  8. HUMIRA [Suspect]
     Active Substance: ADALIMUMAB

REACTIONS (3)
  - Atrial fibrillation [Unknown]
  - Cardiac failure congestive [Unknown]
  - Drug effect incomplete [Unknown]
